FAERS Safety Report 23192135 (Version 2)
Quarter: 2023Q4

REPORT INFORMATION
  Report Type: Spontaneous
  Country: US (occurrence: US)
  Receive Date: 20231116
  Receipt Date: 20231224
  Transmission Date: 20240109
  Serious: No
  Sender: FDA-Public Use
  Company Number: US-TRAVERE-2023TVT00673

PATIENT
  Age: 44 Year
  Sex: Male

DRUGS (3)
  1. FILSPARI [Suspect]
     Active Substance: SPARSENTAN
     Indication: Chronic kidney disease
     Route: 048
     Dates: start: 202310, end: 20231027
  2. FILSPARI [Suspect]
     Active Substance: SPARSENTAN
     Indication: Nephrotic syndrome
  3. FILSPARI [Suspect]
     Active Substance: SPARSENTAN
     Indication: Haematuria

REACTIONS (3)
  - Product use in unapproved indication [Unknown]
  - Glomerular filtration rate decreased [Unknown]
  - Renal disorder [Unknown]

NARRATIVE: CASE EVENT DATE: 20231001
